FAERS Safety Report 10011694 (Version 1)
Quarter: 2014Q1

REPORT INFORMATION
  Report Type: Report from Study
  Country: US (occurrence: US)
  Receive Date: 20140314
  Receipt Date: 20140314
  Transmission Date: 20141002
  Serious: Yes (Other)
  Sender: FDA-Public Use
  Company Number: PHEH2014US005036

PATIENT
  Sex: Male
  Weight: 99.77 kg

DRUGS (1)
  1. GLEEVEC [Suspect]
     Indication: CHRONIC MYELOID LEUKAEMIA
     Dosage: 400 MG, DAILY
     Route: 048
     Dates: end: 201305

REACTIONS (2)
  - Nephrolithiasis [Not Recovered/Not Resolved]
  - Ureteric obstruction [Not Recovered/Not Resolved]
